FAERS Safety Report 20410209 (Version 1)
Quarter: 2022Q1

REPORT INFORMATION
  Report Type: Spontaneous
  Country: US (occurrence: None)
  Receive Date: 20220131
  Receipt Date: 20220131
  Transmission Date: 20220423
  Serious: No
  Sender: FDA-Public Use
  Company Number: None

PATIENT
  Age: 44 Year
  Sex: Female
  Weight: 76.5 kg

DRUGS (2)
  1. MOLNUPIRAVIR [Suspect]
     Active Substance: MOLNUPIRAVIR
     Indication: COVID-19
     Dosage: OTHER FREQUENCY : Q 12 HOURS;?
     Route: 048
     Dates: start: 20220125, end: 20220130
  2. Hydrocortisone 5mg daily [Concomitant]

REACTIONS (1)
  - Burning sensation [None]

NARRATIVE: CASE EVENT DATE: 20220131
